FAERS Safety Report 22322820 (Version 1)
Quarter: 2023Q2

REPORT INFORMATION
  Report Type: Spontaneous
  Country: US (occurrence: US)
  Receive Date: 20230516
  Receipt Date: 20230516
  Transmission Date: 20230721
  Serious: No
  Sender: FDA-Public Use
  Company Number: US-JAZZ-2022-US-006060

PATIENT
  Sex: Male

DRUGS (1)
  1. SUNOSI [Suspect]
     Active Substance: SOLRIAMFETOL
     Indication: Narcolepsy
     Dosage: 1/2 TABLET EVERDAY
     Route: 048
     Dates: start: 20200917, end: 20220201

REACTIONS (1)
  - Insomnia [Unknown]
